FAERS Safety Report 4763276-7 (Version None)
Quarter: 2005Q3

REPORT INFORMATION
  Report Type: 
  Country: None (occurrence: None)
  Receive Date: 20050906
  Receipt Date: 20050822
  Transmission Date: 20060218
  Serious: Yes (Hospitalization)
  Sender: FDA-Public Use
  Company Number: 05-08-1469

PATIENT
  Age: 58 Year
  Sex: Female

DRUGS (3)
  1. TRAMADOL HCL [Suspect]
     Indication: NEUROPATHIC PAIN
     Dosage: 100MG QID ORAL
     Route: 048
     Dates: start: 20050501
  2. GABAPENTIN [Concomitant]
  3. AMITRIPTYLINE HCL [Concomitant]

REACTIONS (1)
  - ADVERSE EVENT [None]
